FAERS Safety Report 8811636 (Version 1)
Quarter: 2012Q4

REPORT INFORMATION
  Report Type: Spontaneous
  Country: US (occurrence: None)
  Receive Date: 20120925
  Receipt Date: 20120925
  Transmission Date: 20130627
  Serious: Yes (Other)
  Sender: FDA-Public Use
  Company Number: None

PATIENT
  Age: 31 Year
  Sex: Female
  Weight: 85.28 kg

DRUGS (1)
  1. PAROXETINE [Suspect]
     Indication: ANXIETY

REACTIONS (5)
  - Cerebrovascular accident [None]
  - Cerebral disorder [None]
  - Tremor [None]
  - Dizziness [None]
  - Chest pain [None]
